FAERS Safety Report 16821820 (Version 1)
Quarter: 2019Q3

REPORT INFORMATION
  Report Type: Report from Study
  Country: None (occurrence: US)
  Receive Date: 20190918
  Receipt Date: 20190918
  Transmission Date: 20191005
  Serious: Yes (Other)
  Sender: FDA-Public Use
  Company Number: US-ABBVIE-19K-163-2880443-00

PATIENT
  Age: 64 Year
  Sex: Female

DRUGS (1)
  1. HUMIRA [Suspect]
     Active Substance: ADALIMUMAB
     Indication: RHEUMATOID ARTHRITIS
     Route: 058
     Dates: end: 20190515

REACTIONS (4)
  - Accident at work [Recovering/Resolving]
  - Traumatic haematoma [Unknown]
  - Impaired healing [Unknown]
  - Skin injury [Recovering/Resolving]

NARRATIVE: CASE EVENT DATE: 2019
